FAERS Safety Report 19808955 (Version 1)
Quarter: 2021Q3

REPORT INFORMATION
  Report Type: Spontaneous
  Country: US (occurrence: US)
  Receive Date: 20210909
  Receipt Date: 20210909
  Transmission Date: 20211014
  Serious: Yes (Other)
  Sender: FDA-Public Use
  Company Number: None

PATIENT
  Age: 56 Year
  Sex: Female
  Weight: 121.5 kg

DRUGS (16)
  1. PFIZER?BIONTECH COVID?19 VACCINE [Suspect]
     Active Substance: TOZINAMERAN
     Indication: COVID-19 IMMUNISATION
     Dosage: ?          OTHER FREQUENCY:BOOSTER;?
     Route: 030
     Dates: start: 20210827, end: 20210827
  2. IMURAN [Concomitant]
     Active Substance: AZATHIOPRINE
  3. LEVOTHYROXINE. [Suspect]
     Active Substance: LEVOTHYROXINE
  4. ALLEGRA [Concomitant]
     Active Substance: FEXOFENADINE HYDROCHLORIDE
  5. FOLIC ACID. [Concomitant]
     Active Substance: FOLIC ACID
  6. PREDNISONE (OCCASSIONAL USE) [Concomitant]
  7. MODAFINIL. [Concomitant]
     Active Substance: MODAFINIL
  8. WELLBUTRIN [Concomitant]
     Active Substance: BUPROPION HYDROCHLORIDE
  9. AIMOVIG [Concomitant]
     Active Substance: ERENUMAB-AOOE
  10. FLEXERIL [Concomitant]
     Active Substance: CYCLOBENZAPRINE HYDROCHLORIDE
  11. CEVIMILINE [Concomitant]
  12. MELOXICAM. [Concomitant]
     Active Substance: MELOXICAM
  13. LOSARTAN. [Concomitant]
     Active Substance: LOSARTAN
  14. PRAVACHOL [Concomitant]
     Active Substance: PRAVASTATIN SODIUM
  15. SINGULAIR [Concomitant]
     Active Substance: MONTELUKAST SODIUM
  16. KEVZARA [Concomitant]
     Active Substance: SARILUMAB

REACTIONS (5)
  - Condition aggravated [None]
  - Chills [None]
  - Pyrexia [None]
  - Rheumatoid arthritis [None]
  - Thyroid function test abnormal [None]

NARRATIVE: CASE EVENT DATE: 20210827
